FAERS Safety Report 23190181 (Version 3)
Quarter: 2023Q4

REPORT INFORMATION
  Report Type: Report from Study
  Country: US (occurrence: US)
  Receive Date: 20231116
  Receipt Date: 20231213
  Transmission Date: 20240110
  Serious: Yes (Other)
  Sender: FDA-Public Use
  Company Number: US-HORIZON THERAPEUTICS-HZN-2023-009155

PATIENT

DRUGS (2)
  1. TEPEZZA [Suspect]
     Active Substance: TEPROTUMUMAB-TRBW
     Indication: Endocrine ophthalmopathy
     Dosage: FIRST INFUSION
     Route: 065
     Dates: start: 20231026
  2. TEPEZZA [Suspect]
     Active Substance: TEPROTUMUMAB-TRBW
     Dosage: SECOND INFUSION
     Route: 042
     Dates: start: 20231116

REACTIONS (4)
  - Diarrhoea haemorrhagic [Unknown]
  - Frequent bowel movements [Not Recovered/Not Resolved]
  - Anorectal discomfort [Unknown]
  - Dyschezia [Unknown]

NARRATIVE: CASE EVENT DATE: 20230101
